FAERS Safety Report 18625731 (Version 1)
Quarter: 2020Q4

REPORT INFORMATION
  Report Type: Spontaneous
  Country: ES (occurrence: ES)
  Receive Date: 20201216
  Receipt Date: 20201216
  Transmission Date: 20210114
  Serious: Yes (Other)
  Sender: FDA-Public Use
  Company Number: ES-ANIPHARMA-2020-ES-000166

PATIENT
  Age: 72 Year
  Sex: Female

DRUGS (1)
  1. ZONISAMIDE (NON-SPECIFIC) [Suspect]
     Active Substance: ZONISAMIDE
     Indication: ESSENTIAL TREMOR
     Dosage: 50 MG DAILY
     Route: 048

REACTIONS (1)
  - Choroidal effusion [Unknown]
